FAERS Safety Report 5637332-5 (Version None)
Quarter: 2008Q1

REPORT INFORMATION
  Report Type: 
  Country: None (occurrence: None)
  Receive Date: 20080225
  Receipt Date: 20080211
  Transmission Date: 20080703
  Serious: Yes (Other)
  Sender: FDA-Public Use
  Company Number: US-ROCHE-548832

PATIENT
  Age: 45 Year
  Sex: Female

DRUGS (18)
  1. INTERFERON ALFA [Suspect]
     Route: 065
  2. RITUXIMAB [Suspect]
     Dosage: THERAPY GIVEN ON DAYS 1 AND 8
     Route: 042
  3. RITUXIMAB [Suspect]
     Route: 042
  4. MITOXANTRONE [Suspect]
     Dosage: THERAPY ON DAY 1
     Route: 042
  5. MITOXANTRONE [Suspect]
     Dosage: THERAPY ON DAY 1.
     Route: 042
  6. DEXAMETHASONE TAB [Suspect]
     Dosage: THERAPY GIVEN ON DAYS 1 TO 3, MONTHLY.
     Route: 048
  7. DEXAMETHASONE TAB [Suspect]
     Route: 048
  8. CYCLOPHOSPHAMIDE [Suspect]
     Route: 065
  9. DOXORUBICIN HCL [Suspect]
     Route: 065
  10. VINCRISTINE [Suspect]
     Route: 065
  11. PREDNISONE TAB [Suspect]
     Route: 065
  12. BLEOMYCIN [Suspect]
     Route: 065
  13. ETOPOSIDE [Suspect]
     Route: 065
  14. METHYLPREDNISOLONE [Suspect]
     Route: 065
  15. CYTARABINE [Suspect]
     Route: 065
  16. CISPLATIN [Suspect]
     Route: 065
  17. PROCARBAZINE [Suspect]
     Route: 065
  18. FLUDARABINE [Suspect]
     Dosage: THERAPY GIVEN ON DAYS 1 AND 3
     Route: 042

REACTIONS (1)
  - MYELODYSPLASTIC SYNDROME [None]
